FAERS Safety Report 21146432 (Version 1)
Quarter: 2022Q3

REPORT INFORMATION
  Report Type: Spontaneous
  Country: US (occurrence: US)
  Receive Date: 20220729
  Receipt Date: 20220729
  Transmission Date: 20221026
  Serious: Yes (Death, Life-Threatening)
  Sender: FDA-Public Use
  Company Number: US-drreddys-LIT/USA/22/0152752

PATIENT
  Age: 2 Year
  Sex: Female

DRUGS (4)
  1. VINORELBINE [Suspect]
     Active Substance: VINORELBINE TARTRATE
     Indication: Ovarian germ cell tumour mixed
  2. TEMSIROLIMUS [Suspect]
     Active Substance: TEMSIROLIMUS
     Indication: Ovarian germ cell tumour mixed
     Route: 042
  3. CYCLOPHOSPHAMIDE [Suspect]
     Active Substance: CYCLOPHOSPHAMIDE
     Indication: Ovarian germ cell tumour mixed
     Dosage: CHEMOTHERAPY AS PER D9803 PROTOCOL COMPRISING OF IV VINCRISTINE, DACTINOMYCIN, AND CYCLOPHOSPHAMIDE
  4. CYCLOPHOSPHAMIDE [Suspect]
     Active Substance: CYCLOPHOSPHAMIDE
     Dosage: ARST0921 PROTOCOL TREATMENT INVOLVING IV TEMSIROLIMUS, VINORELBINE, AND CYCLOPHOSPHAMIDE

REACTIONS (2)
  - Disease progression [Fatal]
  - Drug ineffective [Unknown]
